FAERS Safety Report 9551662 (Version 2)
Quarter: 2013Q3

REPORT INFORMATION
  Report Type: Spontaneous
  Country: US (occurrence: US)
  Receive Date: 20130925
  Receipt Date: 20130925
  Transmission Date: 20140515
  Serious: No
  Sender: FDA-Public Use
  Company Number: US-MYLANLABS-2013S1004060

PATIENT
  Age: 75 Year
  Sex: Male

DRUGS (1)
  1. SPIRONOLACTONE TABLETS, USP [Suspect]
     Indication: BLOOD PRESSURE INCREASED
     Route: 048
     Dates: start: 201301, end: 201301

REACTIONS (3)
  - Drug ineffective [Recovered/Resolved]
  - Blood pressure increased [Recovered/Resolved]
  - Insomnia [Recovered/Resolved]
